FAERS Safety Report 7291932-8 (Version None)
Quarter: 2011Q1

REPORT INFORMATION
  Report Type: 
  Country: None (occurrence: None)
  Receive Date: 20110214
  Receipt Date: 20110210
  Transmission Date: 20110831
  Serious: Yes (Hospitalization)
  Sender: FDA-Public Use
  Company Number: DE-ABBOTT-11P-062-0703246-00

PATIENT
  Age: 46 Year
  Sex: Female

DRUGS (3)
  1. METHOTREXAT [Concomitant]
     Indication: PRODUCT USED FOR UNKNOWN INDICATION
     Dates: start: 20010601
  2. HUMIRA [Suspect]
     Route: 058
     Dates: start: 20091201, end: 20100301
  3. HUMIRA [Suspect]
     Indication: RHEUMATOID ARTHRITIS
     Route: 058
     Dates: start: 20051001, end: 20080901

REACTIONS (2)
  - JOINT RANGE OF MOTION DECREASED [None]
  - FOOT OPERATION [None]
